FAERS Safety Report 18581576 (Version 1)
Quarter: 2020Q4

REPORT INFORMATION
  Report Type: Spontaneous
  Country: US (occurrence: US)
  Receive Date: 20201204
  Receipt Date: 20201204
  Transmission Date: 20210114
  Serious: No
  Sender: FDA-Public Use
  Company Number: US-TAKEDA-2020TUS052775

PATIENT
  Sex: Female
  Weight: 62.13 kg

DRUGS (16)
  1. ACETAMINOPHEN. [Concomitant]
     Active Substance: ACETAMINOPHEN
  2. COUMADIN [Concomitant]
     Active Substance: WARFARIN SODIUM
  3. VIT D [Concomitant]
     Active Substance: VITAMIN D NOS
  4. DIPHENHYDRAMINE. [Concomitant]
     Active Substance: DIPHENHYDRAMINE
  5. SODIUM CHLORIDE. [Concomitant]
     Active Substance: SODIUM CHLORIDE
  6. MAGNESIUM [Concomitant]
     Active Substance: MAGNESIUM
  7. CALCIUM [Concomitant]
     Active Substance: CALCIUM
  8. VITAMIN C [Concomitant]
     Active Substance: ASCORBIC ACID
  9. FAMOTIDINE. [Concomitant]
     Active Substance: FAMOTIDINE
  10. TUMS [Concomitant]
     Active Substance: CALCIUM CARBONATE
  11. GAMMAGARD LIQUID [Suspect]
     Active Substance: HUMAN IMMUNOGLOBULIN G
     Indication: CHRONIC INFLAMMATORY DEMYELINATING POLYRADICULONEUROPATHY
     Dosage: 60 MILLIGRAM, Q4WEEKS
     Route: 042
     Dates: start: 20121009
  12. CEPHALEXIN [CEFALEXIN] [Concomitant]
     Active Substance: CEPHALEXIN
  13. AZO [Concomitant]
     Active Substance: PHENAZOPYRIDINE HYDROCHLORIDE
  14. NEURONTIN [Concomitant]
     Active Substance: GABAPENTIN
  15. EPINEPHRINE. [Concomitant]
     Active Substance: EPINEPHRINE
  16. BENADRYL [Concomitant]
     Active Substance: DIPHENHYDRAMINE HYDROCHLORIDE

REACTIONS (2)
  - Infusion site discomfort [Unknown]
  - Infusion site pain [Unknown]
